FAERS Safety Report 7095497-5 (Version None)
Quarter: 2010Q4

REPORT INFORMATION
  Report Type: 
  Country: None (occurrence: None)
  Receive Date: 20101111
  Receipt Date: 20101029
  Transmission Date: 20110411
  Serious: Yes (Death, Hospitalization)
  Sender: FDA-Public Use
  Company Number: CA-ELI_LILLY_AND_COMPANY-CA201011000092

PATIENT
  Sex: Male

DRUGS (2)
  1. CYMBALTA [Suspect]
     Indication: FIBROMYALGIA
     Dosage: UNK, UNK
  2. LYRICA [Concomitant]

REACTIONS (4)
  - CARDIAC DISORDER [None]
  - DEATH [None]
  - GENERAL PHYSICAL CONDITION ABNORMAL [None]
  - HOSPITALISATION [None]
